FAERS Safety Report 9210624 (Version 3)
Quarter: 2014Q3

REPORT INFORMATION
  Report Type: Spontaneous
  Country: US (occurrence: US)
  Receive Date: 20130404
  Receipt Date: 20140904
  Transmission Date: 20150326
  Serious: Yes (Hospitalization, Other)
  Sender: FDA-Public Use
  Company Number: US-009507513-1304USA001425

PATIENT
  Sex: Female

DRUGS (2)
  1. NUVARING [Suspect]
     Active Substance: ETHINYL ESTRADIOL\ETONOGESTREL
     Indication: CONTRACEPTION
     Dosage: USED ON A CONTINUOUS BASIS
     Route: 067
     Dates: start: 201008
  2. NUVARING [Suspect]
     Active Substance: ETHINYL ESTRADIOL\ETONOGESTREL
     Indication: MENSTRUAL CYCLE MANAGEMENT
     Dosage: UNK
     Route: 067
     Dates: start: 2009, end: 201008

REACTIONS (8)
  - Activated protein C resistance [Unknown]
  - Off label use [Unknown]
  - Hypokalaemia [Unknown]
  - Pneumonia [Recovered/Resolved]
  - Factor V Leiden mutation [Unknown]
  - Atelectasis [Unknown]
  - Incorrect drug administration duration [Unknown]
  - Pulmonary embolism [Unknown]

NARRATIVE: CASE EVENT DATE: 201008
